FAERS Safety Report 5314205-9 (Version None)
Quarter: 2007Q2

REPORT INFORMATION
  Report Type: 
  Country: None (occurrence: None)
  Receive Date: 20070501
  Receipt Date: 20070420
  Transmission Date: 20071010
  Serious: Yes (Other)
  Sender: FDA-Public Use
  Company Number: MW-GILEAD-2007-0011883

PATIENT
  Age: 38 Year
  Sex: Female
  Weight: 48 kg

DRUGS (2)
  1. TENOFOVIR DISOPROXIL FUMARATE [Suspect]
     Indication: HIV INFECTION
     Route: 048
     Dates: start: 20070325, end: 20070325
  2. TENOFOVIR DISOPROXIL FUMARATE [Suspect]
     Route: 048

REACTIONS (1)
  - BLOOD ALBUMIN DECREASED [None]
